FAERS Safety Report 9494037 (Version 1)
Quarter: 2013Q3

REPORT INFORMATION
  Report Type: Report from Study
  Country: US (occurrence: US)
  Receive Date: 20130903
  Receipt Date: 20130903
  Transmission Date: 20140515
  Serious: Yes (Hospitalization)
  Sender: FDA-Public Use
  Company Number: US-ROCHE-1268512

PATIENT
  Age: 78 Year
  Sex: Female

DRUGS (1)
  1. RITUXIMAB [Suspect]
     Indication: CHRONIC LYMPHOCYTIC LEUKAEMIA
     Route: 065

REACTIONS (5)
  - Cholecystitis [Unknown]
  - Urinary retention [Recovered/Resolved]
  - Mental status changes [Recovered/Resolved]
  - Pyrexia [Recovered/Resolved]
  - Clostridium difficile colitis [Recovered/Resolved]
